FAERS Safety Report 7444286-8 (Version None)
Quarter: 2011Q2

REPORT INFORMATION
  Report Type: 
  Country: None (occurrence: None)
  Receive Date: 20110419
  Receipt Date: 20110407
  Transmission Date: 20111010
  Serious: Yes (Disabling)
  Sender: FDA-Public Use
  Company Number: 2011MA002797

PATIENT
  Age: 73 Year
  Sex: Female

DRUGS (10)
  1. HYDROCORTISONE [Concomitant]
  2. AMLODIPINE BESYLATE [Concomitant]
  3. WARFARIN [Concomitant]
  4. TRAMADOL HYDROCHLORIDE [Suspect]
  5. INFLUENZA VIRUS [Concomitant]
  6. METFORMIN HCL [Concomitant]
  7. FUROSEMIDE [Concomitant]
  8. LEVOTHYROXINE SODIUM [Concomitant]
  9. QUININE SULFATE [Concomitant]
  10. LOSARTAN [Concomitant]

REACTIONS (4)
  - JOINT SWELLING [None]
  - GENERALISED OEDEMA [None]
  - SKIN EXFOLIATION [None]
  - BURNING SENSATION [None]
